FAERS Safety Report 24241513 (Version 1)
Quarter: 2024Q3

REPORT INFORMATION
  Report Type: Spontaneous
  Country: US (occurrence: US)
  Receive Date: 20240823
  Receipt Date: 20240823
  Transmission Date: 20241017
  Serious: No
  Sender: JOHNSON AND JOHNSON
  Company Number: US-JNJFOC-20240819445

PATIENT
  Age: 65 Year
  Sex: Female

DRUGS (4)
  1. TYLENOL [Suspect]
     Active Substance: ACETAMINOPHEN
     Indication: Product used for unknown indication
     Route: 065
  2. ALLEGRA [Concomitant]
     Active Substance: FEXOFENADINE HYDROCHLORIDE
     Indication: Product used for unknown indication
     Route: 065
  3. OFEV [Concomitant]
     Active Substance: NINTEDANIB
     Indication: Idiopathic pulmonary fibrosis
     Dosage: 200.0 MLLLIGRAM(S) (100 MLLLIGRAM(S), 1 IN 12 HOUR)
     Route: 048
     Dates: start: 20230912
  4. OFEV [Concomitant]
     Active Substance: NINTEDANIB
     Dosage: 300.0 MILLIGRAM(S) (150 MILLIGRAM(S), 1 IN 12 HOUR)
     Route: 048
     Dates: start: 20230912

REACTIONS (1)
  - Rash [Recovered/Resolved]

NARRATIVE: CASE EVENT DATE: 20231101
